FAERS Safety Report 9935142 (Version 3)
Quarter: 2015Q2

REPORT INFORMATION
  Report Type: Report from Study
  Country: JP (occurrence: JP)
  Receive Date: 20140228
  Receipt Date: 20150610
  Transmission Date: 20150821
  Serious: Yes (Life-Threatening)
  Sender: FDA-Public Use
  Company Number: JP-PFIZER INC-2014057265

PATIENT
  Age: 47 Year
  Sex: Female

DRUGS (16)
  1. MAGMITT [Concomitant]
     Active Substance: MAGNESIUM OXIDE
     Dosage: 500 MG, 3X/DAY
     Route: 048
     Dates: start: 20121128, end: 20130219
  2. NOVAMIN [Concomitant]
     Active Substance: PROCHLORPERAZINE MALEATE
     Dosage: 5 MG, 3X/DAY
     Route: 048
     Dates: start: 20121229, end: 20130114
  3. SOLITA-T 3G [Concomitant]
     Dosage: 500 ML, 1X/DAY
     Dates: start: 20121228, end: 20130104
  4. GASTER [Concomitant]
     Active Substance: FAMOTIDINE
     Dosage: 20 ML, 2X/DAY
     Route: 048
     Dates: start: 20121128, end: 20130219
  5. MORPHINE [Concomitant]
     Active Substance: MORPHINE
     Dosage: 50 MG, 1X/DAY
     Route: 042
     Dates: start: 20121128, end: 20130219
  6. PRIMPERAN [Concomitant]
     Active Substance: METOCLOPRAMIDE HYDROCHLORIDE
     Dosage: 2 ML, 3X/DAY
     Dates: start: 20121128, end: 20130108
  7. NEW LECICARBON [Concomitant]
     Active Substance: SODIUM BICARBONATE\SODIUM PHOSPHATE, MONOBASIC
     Dosage: 2.6 G, AS NEEDED
     Route: 054
     Dates: start: 20121128, end: 20130219
  8. SOLDEM 3A [Concomitant]
     Active Substance: CARBOHYDRATES\POTASSIUM CHLORIDE\SODIUM CHLORIDE\SODIUM LACTATE
     Dosage: 1000 ML, 1X/DAY
     Dates: start: 20121201, end: 20121227
  9. CELECOX [Concomitant]
     Active Substance: CELECOXIB
     Dosage: 100 MG, 2X/DAY
     Route: 048
     Dates: start: 20121128, end: 20130112
  10. CRIZOTINIB [Suspect]
     Active Substance: CRIZOTINIB
     Indication: NON-SMALL CELL LUNG CANCER
     Dosage: 250 MG, 2X/DAY
     Route: 048
     Dates: start: 20121128, end: 20130108
  11. HACHIAZULE [Concomitant]
     Dosage: 2 G, UNK
     Route: 061
     Dates: start: 20121225, end: 20130219
  12. YUNASUPIN [Concomitant]
     Dosage: 1.5 G, 3X/DAY
     Dates: start: 20130103
  13. ALEVIATIN [Concomitant]
     Active Substance: PHENYTOIN SODIUM
     Dosage: 100 MG, 2X/DAY
     Route: 048
     Dates: start: 20121128, end: 20130219
  14. OXYCONTIN [Concomitant]
     Active Substance: OXYCODONE HYDROCHLORIDE
     Dosage: 20 MG, 2X/DAY
     Route: 048
     Dates: start: 20121214, end: 20121226
  15. SELENICA-R [Concomitant]
     Active Substance: SELENIUM
     Dosage: 400 MG, 2X/DAY
     Route: 048
     Dates: start: 20121128, end: 20130219
  16. BFLUID [Concomitant]
     Active Substance: AMINO ACIDS\DEXTROSE\ELECTROLYTES NOS\VITAMINS
     Dosage: 1000 ML, 1X/DAY
     Dates: start: 20130104, end: 20130219

REACTIONS (2)
  - White blood cell count decreased [Recovering/Resolving]
  - Platelet count decreased [Recovering/Resolving]

NARRATIVE: CASE EVENT DATE: 20130108
